FAERS Safety Report 11465355 (Version 3)
Quarter: 2015Q4

REPORT INFORMATION
  Report Type: Report from Study
  Country: KR (occurrence: KR)
  Receive Date: 20150907
  Receipt Date: 20151017
  Transmission Date: 20160304
  Serious: Yes (Hospitalization)
  Sender: FDA-Public Use
  Company Number: KR-AMGEN-KORCT2015062035

PATIENT
  Age: 47 Year
  Sex: Female
  Weight: 51.6 kg

DRUGS (2)
  1. ROMIPLOSTIM [Suspect]
     Active Substance: ROMIPLOSTIM
     Indication: APLASTIC ANAEMIA
     Dosage: 20 MUG/KG, QWK
     Route: 058
     Dates: start: 20141007
  2. BENZYDAMINE [Concomitant]
     Active Substance: BENZYDAMINE
     Indication: CELLULITIS
     Dosage: 15 ML, QD
     Dates: start: 20150617, end: 20150705

REACTIONS (1)
  - Cellulitis [Recovered/Resolved]

NARRATIVE: CASE EVENT DATE: 20150616
